FAERS Safety Report 14543767 (Version 3)
Quarter: 2018Q3

REPORT INFORMATION
  Report Type: Spontaneous
  Country: FR (occurrence: FR)
  Receive Date: 20180216
  Receipt Date: 20180814
  Transmission Date: 20181010
  Serious: Yes (Hospitalization)
  Sender: FDA-Public Use
  Company Number: FR-BAUSCH-BL-2018-004271

PATIENT
  Age: 69 Year
  Sex: Female
  Weight: 63 kg

DRUGS (14)
  1. REVLIMID [Suspect]
     Active Substance: LENALIDOMIDE
     Route: 048
     Dates: start: 20160817, end: 20160818
  2. CALCIUM VITAMIN D3 [Concomitant]
     Indication: MENOPAUSE
     Route: 048
  3. CALCIUM VITAMIN D3 [Concomitant]
     Indication: PROPHYLAXIS
  4. TRANSILANE [Concomitant]
     Indication: PRODUCT USED FOR UNKNOWN INDICATION
     Route: 048
     Dates: start: 20160708
  5. DEXCHLORPHENIRAMINE [Concomitant]
     Active Substance: DEXCHLORPHENIRAMINE
     Indication: PREMEDICATION
     Route: 065
  6. PARACETAMOL [Concomitant]
     Active Substance: ACETAMINOPHEN
     Indication: PREMEDICATION
     Route: 065
  7. LACTULOSE. [Concomitant]
     Active Substance: LACTULOSE
     Indication: PRODUCT USED FOR UNKNOWN INDICATION
     Dosage: 1 DOSE DAILY
     Route: 048
  8. DEDROGYL [Concomitant]
     Active Substance: CALCIFEDIOL
     Indication: PROPHYLAXIS
  9. DEXAMETHASONE. [Suspect]
     Active Substance: DEXAMETHASONE
     Indication: PLASMA CELL MYELOMA
     Route: 065
  10. REVLIMID [Suspect]
     Active Substance: LENALIDOMIDE
     Indication: PLASMA CELL MYELOMA
     Route: 048
     Dates: start: 20160818, end: 20160818
  11. DARATUMUMAB [Suspect]
     Active Substance: DARATUMUMAB
     Indication: PLASMA CELL MYELOMA
     Dosage: TOTAL DOSE 1000 MG
     Route: 041
  12. DEDROGYL [Concomitant]
     Active Substance: CALCIFEDIOL
     Indication: OSTEOPOROSIS PROPHYLAXIS
     Dosage: 6 DROPS
     Route: 048
     Dates: start: 1980
  13. DEDROGYL [Concomitant]
     Active Substance: CALCIFEDIOL
     Indication: MENOPAUSE
  14. CALCIUM VITAMIN D3 [Concomitant]
     Indication: OSTEOPOROSIS PROPHYLAXIS

REACTIONS (4)
  - Insomnia [Recovered/Resolved]
  - Agitation [Unknown]
  - Acute kidney injury [Recovered/Resolved]
  - Abdominal distension [Not Recovered/Not Resolved]

NARRATIVE: CASE EVENT DATE: 20160817
